FAERS Safety Report 15891078 (Version 1)
Quarter: 2019Q1

REPORT INFORMATION
  Report Type: Report from Study
  Country: IT (occurrence: IT)
  Receive Date: 20190130
  Receipt Date: 20190130
  Transmission Date: 20190417
  Serious: Yes (Death, Hospitalization, Disabling, Other)
  Sender: FDA-Public Use
  Company Number: IT-MYLANLABS-2019M1008673

PATIENT
  Age: 43 Year
  Sex: Female
  Weight: 55 kg

DRUGS (5)
  1. CYCLOSPORINE. [Concomitant]
     Active Substance: CYCLOSPORINE
     Dosage: UNK
     Dates: start: 20180928
  2. POSACONAZOLE [Concomitant]
     Active Substance: POSACONAZOLE
     Dosage: UNK
     Dates: start: 2018
  3. LAMIVUDINE. [Concomitant]
     Active Substance: LAMIVUDINE
     Dosage: UNK
     Dates: start: 2018
  4. VALGANCICLOVIR. [Concomitant]
     Active Substance: VALGANCICLOVIR
     Dosage: UNK
     Dates: start: 20181229
  5. PREDNISONE. [Suspect]
     Active Substance: PREDNISONE
     Indication: ACUTE GRAFT VERSUS HOST DISEASE
     Dosage: UNK
     Route: 065
     Dates: start: 20181108

REACTIONS (4)
  - Infection [Not Recovered/Not Resolved]
  - Pancytopenia [Not Recovered/Not Resolved]
  - Cerebral haemorrhage [Fatal]
  - Pyelonephritis [Not Recovered/Not Resolved]

NARRATIVE: CASE EVENT DATE: 20181213
